FAERS Safety Report 11218915 (Version 5)
Quarter: 2015Q4

REPORT INFORMATION
  Report Type: Report from Study
  Country: ID (occurrence: ID)
  Receive Date: 20150625
  Receipt Date: 20151019
  Transmission Date: 20160304
  Serious: Yes (Other)
  Sender: FDA-Public Use
  Company Number: ID-BAYER-2015-192926

PATIENT
  Age: 56 Year
  Sex: Male

DRUGS (7)
  1. STESOLID [Concomitant]
     Active Substance: DIAZEPAM
  2. GABAHEXAL [Concomitant]
  3. BARACLUDE [Concomitant]
     Active Substance: ENTECAVIR
  4. NEXAVAR [Suspect]
     Active Substance: SORAFENIB
     Indication: HEPATOCELLULAR CARCINOMA
     Dosage: 800 MG, DAILY
     Route: 048
     Dates: start: 20150317
  5. SYMAX [Concomitant]
     Active Substance: HYOSCYAMINE SULFATE
  6. ARCOXIA [Concomitant]
     Active Substance: ETORICOXIB
  7. NEXAVAR [Suspect]
     Active Substance: SORAFENIB
     Indication: HEPATOCELLULAR CARCINOMA
     Dosage: 400 MG, DAILY
     Route: 048

REACTIONS (21)
  - Myalgia [None]
  - Hypertension [None]
  - Metastatic squamous cell carcinoma [None]
  - Palmar-plantar erythrodysaesthesia syndrome [Recovering/Resolving]
  - Back pain [Recovered/Resolved]
  - Rash [Recovering/Resolving]
  - Rash pruritic [None]
  - Loose tooth [None]
  - Metastasis [None]
  - Rhinalgia [None]
  - Blister [None]
  - Oedema [None]
  - Nasal discomfort [None]
  - Palmar-plantar erythrodysaesthesia syndrome [None]
  - Stomatitis [Recovering/Resolving]
  - Insomnia [None]
  - Pain in extremity [None]
  - Localised oedema [None]
  - Vision blurred [None]
  - Abdominal distension [None]
  - Toothache [None]

NARRATIVE: CASE EVENT DATE: 20150327
